FAERS Safety Report 13367873 (Version 1)
Quarter: 2017Q1

REPORT INFORMATION
  Report Type: Spontaneous
  Country: CA (occurrence: CA)
  Receive Date: 20170324
  Receipt Date: 20170324
  Transmission Date: 20170429
  Serious: Yes (Other)
  Sender: FDA-Public Use
  Company Number: CA-TEVA-752052ACC

PATIENT
  Age: 21 Year
  Sex: Female

DRUGS (1)
  1. TRANSDERMAL NICOTINE PATCH [Suspect]
     Active Substance: NICOTINE
     Route: 050

REACTIONS (7)
  - Arthralgia [Recovered/Resolved]
  - Erythema [Recovered/Resolved]
  - Pruritus [Recovered/Resolved]
  - Pain [Recovered/Resolved]
  - Burning sensation [Recovered/Resolved]
  - Musculoskeletal pain [Recovered/Resolved]
  - Paraesthesia [Recovered/Resolved]
